FAERS Safety Report 18213532 (Version 1)
Quarter: 2020Q3

REPORT INFORMATION
  Report Type: Spontaneous
  Country: US (occurrence: US)
  Receive Date: 20200831
  Receipt Date: 20200831
  Transmission Date: 20201103
  Serious: No
  Sender: FDA-Public Use
  Company Number: US-PFIZER INC-2020333576

PATIENT
  Age: 65 Year
  Sex: Female
  Weight: 111 kg

DRUGS (6)
  1. BIOTIN [Concomitant]
     Active Substance: BIOTIN
     Dosage: 1 MG
  2. FASLODEX [Concomitant]
     Active Substance: FULVESTRANT
     Dosage: 250 MG/5ML SYRINGE
  3. VITAMIN C [Concomitant]
     Active Substance: ASCORBIC ACID
     Dosage: 1000 MG
  4. IBRANCE [Suspect]
     Active Substance: PALBOCICLIB
     Indication: BREAST CANCER FEMALE
     Dosage: 125 MG, CYCLIC [1 DAILY FOR 21 DAYS]
     Route: 048
     Dates: start: 20200814
  5. VITAMIN D3 [Concomitant]
     Active Substance: CHOLECALCIFEROL
     Dosage: 10 UG
  6. VITAMIN B?6 [Concomitant]
     Active Substance: PYRIDOXINE
     Dosage: 100 MG

REACTIONS (4)
  - Pruritus [Recovered/Resolved]
  - Pain of skin [Recovered/Resolved]
  - Skin haemorrhage [Recovered/Resolved]
  - Scratch [Unknown]
